FAERS Safety Report 10414045 (Version 2)
Quarter: 2014Q3

REPORT INFORMATION
  Report Type: Spontaneous
  Country: US (occurrence: US)
  Receive Date: 20140827
  Receipt Date: 20140827
  Transmission Date: 20150326
  Serious: Yes (Hospitalization)
  Sender: FDA-Public Use
  Company Number: US-009507513-2009-189561-NL

PATIENT
  Age: 45 Year
  Sex: Female
  Weight: 86.2 kg

DRUGS (1)
  1. NUVARING [Suspect]
     Active Substance: ETHINYL ESTRADIOL\ETONOGESTREL
     Indication: CONTRACEPTION
     Dosage: DOSE TEXT: 1 RING PER MONTH, CONTINUING: NO
     Dates: start: 20051203, end: 20060626

REACTIONS (3)
  - Lobar pneumonia [Recovered/Resolved]
  - Deep vein thrombosis [Unknown]
  - Haematoma [Unknown]

NARRATIVE: CASE EVENT DATE: 20060610
